FAERS Safety Report 8573655 (Version 5)
Quarter: 2013Q2

REPORT INFORMATION
  Report Type: Spontaneous
  Country: US (occurrence: None)
  Receive Date: 20120514
  Receipt Date: 20130515
  Transmission Date: 20140414
  Serious: Yes (Hospitalization, Other)
  Sender: FDA-Public Use
  Company Number: JPI-P-019501

PATIENT
  Age: 34 Year
  Sex: Female
  Weight: 104.33 kg

DRUGS (16)
  1. XYREM [Suspect]
     Indication: CATAPLEXY
     Dosage: 4.5 GM (2.25 GM 2 IN 1 D)
     Route: 048
     Dates: start: 20110107, end: 2011
  2. ESOMEPRAZOLE MAGNESIUM [Concomitant]
  3. MODAFINIL [Concomitant]
  4. IBUPROFEN [Concomitant]
  5. MOMETASONE FUROATE MONOHYDRATE [Concomitant]
  6. GABAPENTIN [Concomitant]
  7. ESCITALOPRAM OXALATE [Concomitant]
  8. LEVOTHYROXINE SODIUM [Concomitant]
  9. AMPHETAMINE, DEXTROAMPHETAMINE MIXED SALTS [Concomitant]
  10. MAGNESIUM OXIDE [Concomitant]
  11. POTASSIUM GLUCONATE [Concomitant]
  12. PRIMROSE OIL [Concomitant]
  13. VITAMIN E [Concomitant]
  14. NAPROXEN SODIUM [Concomitant]
  15. VITAMIN D2 [Concomitant]
  16. LORATADINE [Concomitant]

REACTIONS (21)
  - Nephrolithiasis [None]
  - Benign neoplasm of thyroid gland [None]
  - Hypnagogic hallucination [None]
  - Muscle spasms [None]
  - Arthralgia [None]
  - Fluid retention [None]
  - Muscle strain [None]
  - Neck pain [None]
  - Fall [None]
  - Back pain [None]
  - Ear infection [None]
  - Breast pain [None]
  - Nerve compression [None]
  - Chest pain [None]
  - Pain in extremity [None]
  - Hypoaesthesia [None]
  - Paraesthesia [None]
  - Contrast media allergy [None]
  - Urticaria [None]
  - Gastrooesophageal reflux disease [None]
  - Pituitary tumour benign [None]
